FAERS Safety Report 5371441-3 (Version None)
Quarter: 2007Q2

REPORT INFORMATION
  Report Type: 
  Country: None (occurrence: None)
  Receive Date: 20070615
  Receipt Date: 20061227
  Transmission Date: 20071010
  Serious: Yes (Other)
  Sender: FDA-Public Use
  Company Number: 200615204US

PATIENT
  Age: 77 Year
  Sex: Female

DRUGS (10)
  1. LANTUS [Suspect]
     Indication: DIABETES MELLITUS
     Dosage: 45 U HS
  2. LANTUS [Suspect]
     Indication: DIABETES MELLITUS
     Dosage: 35 U
     Dates: start: 20060701
  3. LANTUS [Suspect]
     Indication: DIABETES MELLITUS
  4. OPTICLIK [Suspect]
     Indication: DIABETES MELLITUS NON-INSULIN-DEPENDENT
  5. METFORMIN HYDROCHLORIDE [Concomitant]
  6. AMARYL [Concomitant]
  7. CLOPIDOGREL (PLAVIX /01220701/) [Concomitant]
  8. METOPROLOL TARTRATE [Concomitant]
  9. ATORVASTATIN CALCIUM (LIPITOR) [Concomitant]
  10. HYDROCHLOROTHIAZIDE (THIURETIC) [Concomitant]

REACTIONS (4)
  - BLOOD GLUCOSE INCREASED [None]
  - CHEST PAIN [None]
  - FALL [None]
  - HYPERGLYCAEMIA [None]
